FAERS Safety Report 13463896 (Version 1)
Quarter: 2017Q2

REPORT INFORMATION
  Report Type: Spontaneous
  Country: US (occurrence: US)
  Receive Date: 20170420
  Receipt Date: 20170420
  Transmission Date: 20170830
  Serious: Yes (Hospitalization, Other)
  Sender: FDA-Public Use
  Company Number: US-ROCHE-586177

PATIENT
  Age: 23 Year
  Sex: Male
  Weight: 56.7 kg

DRUGS (5)
  1. ACCUTANE [Suspect]
     Active Substance: ISOTRETINOIN
     Indication: ACNE
     Route: 048
     Dates: start: 20020722, end: 20021213
  2. ACCUTANE [Suspect]
     Active Substance: ISOTRETINOIN
     Route: 048
     Dates: start: 20041007, end: 20050126
  3. ACCUTANE [Suspect]
     Active Substance: ISOTRETINOIN
     Route: 048
     Dates: start: 20030916, end: 20040102
  4. ACCUTANE [Suspect]
     Active Substance: ISOTRETINOIN
     Dosage: THE PATEINT WAS TAKING ISOTRETINOIN 40 MG EVERY OTHER DAY
     Route: 048
     Dates: start: 20040103, end: 20040324
  5. ACCUTANE [Suspect]
     Active Substance: ISOTRETINOIN
     Route: 048
     Dates: start: 20040325, end: 200408

REACTIONS (11)
  - Colitis ulcerative [Recovering/Resolving]
  - Rash [Unknown]
  - Otitis externa [Unknown]
  - Headache [Unknown]
  - Anaemia [Recovered/Resolved]
  - Gastrointestinal disorder [Unknown]
  - Crohn^s disease [Unknown]
  - Inflammatory bowel disease [Recovering/Resolving]
  - Blood triglycerides increased [Recovered/Resolved]
  - Depression [Unknown]
  - Abdominal pain [Unknown]

NARRATIVE: CASE EVENT DATE: 20020911
